FAERS Safety Report 9791706 (Version 2)
Quarter: 2014Q1

REPORT INFORMATION
  Report Type: Spontaneous
  Country: US (occurrence: US)
  Receive Date: 20140102
  Receipt Date: 20140213
  Transmission Date: 20141002
  Serious: No
  Sender: FDA-Public Use
  Company Number: US-009507513-1312USA012094

PATIENT
  Age: 65 Year
  Sex: Female

DRUGS (3)
  1. DULERA [Suspect]
     Indication: RESPIRATORY DISORDER
     Dosage: 2 PUFFS TAKEN TWICE DAILY
     Route: 045
     Dates: start: 201311, end: 2013
  2. CHOLECALCIFEROL [Concomitant]
     Dosage: UNK
  3. ASPIRIN [Concomitant]
     Dosage: UNK

REACTIONS (2)
  - Visual impairment [Not Recovered/Not Resolved]
  - Vision blurred [Not Recovered/Not Resolved]
